FAERS Safety Report 7957570-6 (Version None)
Quarter: 2011Q4

REPORT INFORMATION
  Report Type: 
  Country: None (occurrence: None)
  Receive Date: 20111205
  Receipt Date: 20111129
  Transmission Date: 20120403
  Serious: Yes (Hospitalization)
  Sender: FDA-Public Use
  Company Number: GB-GLAXOSMITHKLINE-B0765359A

PATIENT
  Sex: Male

DRUGS (7)
  1. ENOXAPARIN SODIUM [Concomitant]
  2. RAMIPRIL [Concomitant]
  3. CYCLIZINE [Concomitant]
  4. PAZOPANIB [Suspect]
     Indication: RENAL CELL CARCINOMA
     Dosage: 800MG PER DAY
     Route: 048
  5. OMEPRAZOLE [Concomitant]
  6. FLUTICASONE PROPIONATE/SALMETEROL [Concomitant]
  7. NYSTATIN [Concomitant]

REACTIONS (1)
  - DYSPNOEA [None]
